FAERS Safety Report 4982415-6 (Version None)
Quarter: 2006Q1

REPORT INFORMATION
  Report Type: 
  Country: None (occurrence: None)
  Receive Date: 20060227
  Receipt Date: 20050923
  Transmission Date: 20060701
  Serious: Yes (Disabling)
  Sender: FDA-Public Use
  Company Number: WAES 0509USA03652

PATIENT
  Age: 65 Year
  Sex: Female
  Weight: 48.0813 kg

DRUGS (4)
  1. ZOCOR [Suspect]
     Indication: CEREBROVASCULAR ACCIDENT PROPHYLAXIS
     Dosage: SEE IMAGE
     Route: 048
     Dates: end: 20050601
  2. ZOCOR [Suspect]
     Indication: CEREBROVASCULAR ACCIDENT PROPHYLAXIS
     Dosage: SEE IMAGE
     Route: 048
     Dates: start: 20050601, end: 20050812
  3. ASPIRIN [Concomitant]
  4. HYDROCODONE BITARTRATE [Concomitant]

REACTIONS (3)
  - ASTHENIA [None]
  - DIFFICULTY IN WALKING [None]
  - MYALGIA [None]
